FAERS Safety Report 7517851-7 (Version None)
Quarter: 2011Q2

REPORT INFORMATION
  Report Type: 
  Country: None (occurrence: None)
  Receive Date: 20110602
  Receipt Date: 20110527
  Transmission Date: 20111010
  Serious: Yes (Hospitalization)
  Sender: FDA-Public Use
  Company Number: DE-BRISTOL-MYERS SQUIBB COMPANY-15765381

PATIENT
  Age: 51 Year
  Sex: Male

DRUGS (12)
  1. JONOSTERIL [Concomitant]
  2. VITAMIN TAB [Concomitant]
  3. GEMCITABINE [Suspect]
     Indication: NON-SMALL CELL LUNG CANCER
     Dosage: LAST DOSE ON 02MAY2011 FREQUENCY: ON DAY 1,8 EVERY 3 WEEKS
     Route: 042
     Dates: start: 20110401
  4. PANTOPRAZOLE [Concomitant]
  5. TPN ELECTROLYTES IN PLASTIC CONTAINER [Concomitant]
  6. METOCLOPRAMIDE HCL [Concomitant]
  7. RAMIPRIL [Concomitant]
  8. DEXAMETHASONE [Concomitant]
  9. CETUXIMAB [Suspect]
     Indication: NON-SMALL CELL LUNG CANCER
     Dosage: LAST DOSE ON 09MAY2011 LOADING DOSE:400MG/M2 ON DAY 1
     Route: 042
     Dates: start: 20110401
  10. LIPOVENOES [Concomitant]
  11. ARIXTRA [Concomitant]
  12. GRANISETRON HCL [Concomitant]

REACTIONS (3)
  - LUNG INFILTRATION [None]
  - FATIGUE [None]
  - CONFUSIONAL STATE [None]
